FAERS Safety Report 23940102 (Version 2)
Quarter: 2024Q2

REPORT INFORMATION
  Report Type: Report from Study
  Country: US (occurrence: US)
  Receive Date: 20240605
  Receipt Date: 20240628
  Transmission Date: 20240716
  Serious: Yes (Other)
  Sender: FDA-Public Use
  Company Number: US-ABBVIE-5785572

PATIENT
  Age: 73 Year
  Sex: Female

DRUGS (1)
  1. HUMIRA [Suspect]
     Active Substance: ADALIMUMAB
     Indication: Rheumatoid arthritis
     Route: 058
     Dates: start: 20231213

REACTIONS (6)
  - Benign neoplasm [Recovering/Resolving]
  - Headache [Recovering/Resolving]
  - Scar [Recovering/Resolving]
  - Pruritus [Recovering/Resolving]
  - Gastrooesophageal reflux disease [Recovering/Resolving]
  - Dysphagia [Recovering/Resolving]

NARRATIVE: CASE EVENT DATE: 20240610
